FAERS Safety Report 9812516 (Version 3)
Quarter: 2016Q3

REPORT INFORMATION
  Report Type: Report from Study
  Country: US (occurrence: US)
  Receive Date: 20140113
  Receipt Date: 20160808
  Transmission Date: 20161109
  Serious: Yes (Other)
  Sender: FDA-Public Use
  Company Number: US-ROCHE-696371

PATIENT
  Age: 52 Year
  Sex: Male
  Weight: 77.1 kg

DRUGS (4)
  1. VISMODEGIB [Suspect]
     Active Substance: VISMODEGIB
     Indication: NEOPLASM
     Dosage: 150 MG, QD
     Route: 048
     Dates: start: 20091203, end: 20091229
  2. ERLOTINIB [Suspect]
     Active Substance: ERLOTINIB
     Indication: NEOPLASM
     Dosage: 150 MG, QD
     Route: 048
     Dates: start: 20091203, end: 20091229
  3. ERLOTINIB [Suspect]
     Active Substance: ERLOTINIB
     Route: 048
     Dates: start: 20091205, end: 20091230
  4. VISMODEGIB [Suspect]
     Active Substance: VISMODEGIB
     Route: 048
     Dates: start: 20091205, end: 20091230

REACTIONS (12)
  - Abdominal pain [Unknown]
  - Pruritus [Unknown]
  - Dehydration [Unknown]
  - Hiccups [Unknown]
  - Hyponatraemia [Unknown]
  - Vomiting [Unknown]
  - Decreased appetite [Unknown]
  - Dyspnoea [Unknown]
  - Blood alkaline phosphatase increased [Unknown]
  - Aspartate aminotransferase increased [Unknown]
  - Stevens-Johnson syndrome [Unknown]
  - Nausea [Unknown]

NARRATIVE: CASE EVENT DATE: 20091209
